FAERS Safety Report 6304984-6 (Version None)
Quarter: 2009Q3

REPORT INFORMATION
  Report Type: 
  Country: None (occurrence: None)
  Receive Date: 20090811
  Receipt Date: 20090727
  Transmission Date: 20100115
  Serious: Yes (Hospitalization)
  Sender: FDA-Public Use
  Company Number: NL-GENENTECH-287680

PATIENT
  Sex: Female

DRUGS (10)
  1. BEVACIZUMAB [Suspect]
     Indication: BREAST CANCER METASTATIC
     Dosage: 1100 MG, QD
     Route: 042
     Dates: start: 20081212
  2. BEVACIZUMAB [Suspect]
     Dosage: 960 MG, QD
  3. CAPECITABINE [Suspect]
     Indication: BREAST CANCER METASTATIC
     Dosage: 1500 MG, QD
     Route: 048
     Dates: start: 20081212
  4. CAPECITABINE [Suspect]
     Dosage: 2300 MG, QD
  5. PACLITAXEL [Suspect]
     Indication: BREAST CANCER METASTATIC
     Dosage: 160 MG, QD
     Route: 042
     Dates: start: 20081212
  6. COTRIM [Concomitant]
     Indication: DRUG USE FOR UNKNOWN INDICATION
     Dosage: UNK
     Dates: start: 20030101
  7. PREDNISONE [Concomitant]
     Indication: DRUG USE FOR UNKNOWN INDICATION
     Dosage: UNK
     Dates: start: 20030101
  8. TOLBUTAMIDE [Concomitant]
     Indication: DRUG USE FOR UNKNOWN INDICATION
     Dosage: UNK
     Dates: start: 20030101
  9. AMLODIPINE [Concomitant]
     Indication: DRUG USE FOR UNKNOWN INDICATION
     Dosage: UNK
     Dates: start: 20090218
  10. DURAGESIC-100 [Concomitant]
     Indication: DRUG USE FOR UNKNOWN INDICATION
     Dosage: UNK
     Dates: start: 20090601

REACTIONS (2)
  - COMA [None]
  - GENERAL PHYSICAL HEALTH DETERIORATION [None]
